FAERS Safety Report 8497431-X (Version None)
Quarter: 2012Q3

REPORT INFORMATION
  Report Type: 
  Country: None (occurrence: None)
  Receive Date: 20120709
  Receipt Date: 20120612
  Transmission Date: 20120928
  Serious: No
  Sender: FDA-Public Use
  Company Number: US-AMGEN-USASP2012036557

PATIENT
  Age: 64 Year
  Sex: Female

DRUGS (1)
  1. ENBREL [Suspect]
     Indication: PSORIATIC ARTHROPATHY
     Dosage: 50 MG, QWK
     Dates: start: 20030101

REACTIONS (8)
  - STOMATITIS [None]
  - LIP DISCOLOURATION [None]
  - FATIGUE [None]
  - COUGH [None]
  - MYALGIA [None]
  - HEADACHE [None]
  - VISUAL IMPAIRMENT [None]
  - VULVOVAGINAL MYCOTIC INFECTION [None]
